FAERS Safety Report 9379208 (Version 1)
Quarter: 2013Q3

REPORT INFORMATION
  Report Type: Spontaneous
  Country: ES (occurrence: ES)
  Receive Date: 20130702
  Receipt Date: 20130702
  Transmission Date: 20140515
  Serious: Yes (Death)
  Sender: FDA-Public Use
  Company Number: ES-ASTELLAS-2013EU005580

PATIENT
  Age: 56 Year
  Sex: Female
  Weight: 102 kg

DRUGS (1)
  1. MYCAMINE [Suspect]
     Indication: ASPERGILLUS INFECTION
     Dosage: UNK
     Route: 042
     Dates: start: 20121111

REACTIONS (2)
  - Off label use [Unknown]
  - Death [Fatal]
